FAERS Safety Report 8443108-6 (Version None)
Quarter: 2012Q2

REPORT INFORMATION
  Report Type: 
  Country: None (occurrence: None)
  Receive Date: 20120615
  Receipt Date: 20120605
  Transmission Date: 20120825
  Serious: Yes (Hospitalization, Other)
  Sender: FDA-Public Use
  Company Number: US-FRI-1000024889

PATIENT
  Sex: Female
  Weight: 180 kg

DRUGS (27)
  1. SAVELLA [Suspect]
     Dosage: 50 MG
     Route: 048
     Dates: start: 20110910, end: 20110912
  2. LOVAZA [Suspect]
     Dosage: 4 GM
     Route: 048
     Dates: start: 20110907
  3. ADIPEX-P [Concomitant]
     Dosage: 37.5 MG
     Route: 048
     Dates: start: 20110713
  4. AMOXICILLIN [Concomitant]
     Dosage: 1000 MG
     Route: 048
  5. CRANBERRY [Concomitant]
     Dosage: 500 MG
     Route: 048
     Dates: start: 20110601
  6. POTASSIUM ACETATE [Concomitant]
     Dosage: 297 MG
     Dates: start: 20110713
  7. SAVELLA [Suspect]
     Dosage: 25 MG
     Route: 048
     Dates: start: 20110908, end: 20110909
  8. AMITRIPTYLINE HCL [Concomitant]
     Dosage: 50 MG
     Route: 048
     Dates: start: 20110601
  9. CINNAMON [Concomitant]
     Dosage: 1000 MG
     Route: 048
     Dates: start: 20110601
  10. WELLBUTRIN [Concomitant]
     Dosage: 300 MG
     Route: 048
  11. CRESTOR [Suspect]
     Dosage: 20 MG
     Route: 048
     Dates: start: 20110601
  12. M.V.I. [Concomitant]
     Dates: start: 20110601
  13. OXYBUTYNIN CHLORIDE [Concomitant]
     Dosage: 10 MG
     Route: 048
     Dates: start: 20110601
  14. SYNTHROID [Concomitant]
     Dosage: 250 MCG
     Route: 048
  15. WARFARIN SODIUM [Concomitant]
     Dosage: 7 MG
     Route: 048
  16. PRILOSEC [Suspect]
     Dosage: 20 MG
     Route: 048
     Dates: start: 20110601
  17. ALLOPURINOL [Concomitant]
     Dosage: 300 MG
     Route: 048
     Dates: start: 20110713
  18. FENOFIBRATE [Concomitant]
     Dosage: 160 MG
     Route: 048
  19. PROPRANOLOL [Concomitant]
     Dosage: 80 MG
     Route: 048
     Dates: start: 20110902
  20. VITAMIN D [Concomitant]
     Dosage: 5000 IU
     Dates: start: 20110907
  21. TORSEMIDE [Suspect]
     Dosage: 80 MG
     Route: 048
     Dates: start: 20110713
  22. LISINOPRIL [Concomitant]
     Dosage: 10 MG
     Route: 048
     Dates: start: 20110622
  23. VICODIN [Concomitant]
     Dosage: 1 TABLET EVERY 6 HOURS AS NEEDED
     Route: 048
     Dates: start: 20110907
  24. GLIMEPIRIDE [Concomitant]
     Dosage: 4 MG
     Route: 048
     Dates: start: 20110907
  25. SAVELLA [Suspect]
     Indication: FIBROMYALGIA
     Dosage: 12.5 MG
     Route: 048
     Dates: start: 20110907, end: 20110907
  26. IBUPROFEN [Suspect]
     Dosage: 2400 MG
     Route: 048
     Dates: start: 20110601
  27. METFORMIN HCL [Concomitant]
     Dosage: 2000 MG
     Route: 048
     Dates: start: 20110601

REACTIONS (4)
  - ADVERSE DRUG REACTION [None]
  - ANAPHYLACTIC SHOCK [None]
  - DIARRHOEA [None]
  - DERMATITIS EXFOLIATIVE [None]
